FAERS Safety Report 23669651 (Version 2)
Quarter: 2024Q1

REPORT INFORMATION
  Report Type: Spontaneous
  Country: NL (occurrence: NL)
  Receive Date: 20240325
  Receipt Date: 20240327
  Transmission Date: 20240409
  Serious: Yes (Death)
  Sender: FDA-Public Use
  Company Number: None

PATIENT
  Age: 67 Year
  Sex: Female
  Weight: 77 kg

DRUGS (6)
  1. ACETAMINOPHEN [Suspect]
     Active Substance: ACETAMINOPHEN
     Indication: Back pain
     Dosage: 4X PER DAY 2 TABLETS
     Route: 065
     Dates: start: 20240123, end: 20240214
  2. CARBOHYDRATES\FATTY ACIDS\MINERALS\PROTEIN\VITAMINS [Concomitant]
     Active Substance: CARBOHYDRATES\FATTY ACIDS\MINERALS\PROTEIN\VITAMINS
     Dosage: SONDEVOEDING
  3. THIAMINE [Concomitant]
     Active Substance: THIAMINE
     Dosage: TABLET, 100 MG (MILLIGRAM)
  4. APIXABAN [Concomitant]
     Active Substance: APIXABAN
     Dosage: TABLET, 2,5 MG (MILLIGRAM)
  5. CEFAZOLIN [Concomitant]
     Active Substance: CEFAZOLIN
     Indication: Staphylococcal bacteraemia
     Dosage: 1 DOSAGE FORM
     Dates: start: 20240201, end: 20240207
  6. FLUCLOXACILLIN [Suspect]
     Active Substance: FLUCLOXACILLIN
     Indication: Staphylococcal bacteraemia
     Dosage: 1 X PER DAG 12000 MG
     Dates: start: 20240208, end: 20240214

REACTIONS (1)
  - Metabolic acidosis [Fatal]
